FAERS Safety Report 19657546 (Version 2)
Quarter: 2021Q3

REPORT INFORMATION
  Report Type: Report from Study
  Country: US (occurrence: US)
  Receive Date: 20210804
  Receipt Date: 20210824
  Transmission Date: 20211014
  Serious: Yes (Death, Hospitalization)
  Sender: FDA-Public Use
  Company Number: US-EXELIXIS-CABO-21039108

PATIENT
  Age: 57 Year
  Sex: Male

DRUGS (3)
  1. CABOMETYX [Suspect]
     Active Substance: CABOZANTINIB S-MALATE
     Indication: RENAL CANCER
     Dosage: 40 MG, QD
     Route: 048
     Dates: start: 20201016
  2. CABOMETYX [Suspect]
     Active Substance: CABOZANTINIB S-MALATE
     Indication: BONE CANCER METASTATIC
  3. CABOMETYX [Suspect]
     Active Substance: CABOZANTINIB S-MALATE
     Indication: RETROPERITONEAL NEOPLASM METASTATIC
     Dosage: 20 MG, QD
     Route: 048
     Dates: start: 202010, end: 202107

REACTIONS (6)
  - Intra-abdominal fluid collection [Fatal]
  - Clostridium difficile infection [Unknown]
  - Sepsis [Fatal]
  - Diarrhoea [Unknown]
  - Blister [Unknown]
  - Pain in jaw [Unknown]

NARRATIVE: CASE EVENT DATE: 20210706
